FAERS Safety Report 9741525 (Version 2)
Quarter: 2013Q4

REPORT INFORMATION
  Report Type: Spontaneous
  Country: US (occurrence: US)
  Receive Date: 20131210
  Receipt Date: 20131226
  Transmission Date: 20140711
  Serious: No
  Sender: FDA-Public Use
  Company Number: US-009507513-1312USA003431

PATIENT
  Sex: 0

DRUGS (4)
  1. PEGINTRON [Suspect]
     Indication: HEPATIC CIRRHOSIS
     Dosage: UNK
  2. REBETOL [Suspect]
     Indication: HEPATIC CIRRHOSIS
     Route: 048
  3. VICTRELIS [Suspect]
     Indication: HEPATIC CIRRHOSIS
     Route: 048
  4. TELAPREVIR [Suspect]
     Indication: HEPATIC CIRRHOSIS

REACTIONS (1)
  - Hepatic cirrhosis [Unknown]
